FAERS Safety Report 9867762 (Version 1)
Quarter: 2014Q1

REPORT INFORMATION
  Report Type: Spontaneous
  Country: US (occurrence: US)
  Receive Date: 20140204
  Receipt Date: 20140204
  Transmission Date: 20141002
  Serious: No
  Sender: FDA-Public Use
  Company Number: US-TEVA-460538USA

PATIENT
  Age: 72 Year
  Sex: Male
  Weight: 73.09 kg

DRUGS (6)
  1. COPAXONE [Suspect]
     Indication: MULTIPLE SCLEROSIS
     Dates: start: 201308
  2. ASPIRIN [Concomitant]
  3. SIMVASTATIN [Concomitant]
  4. GABAPENTIN [Concomitant]
  5. NORVASC [Concomitant]
  6. NORCO [Concomitant]

REACTIONS (2)
  - Injection site swelling [Not Recovered/Not Resolved]
  - Injection site mass [Not Recovered/Not Resolved]
